FAERS Safety Report 5389598-7 (Version None)
Quarter: 2007Q3

REPORT INFORMATION
  Report Type: 
  Country: None (occurrence: None)
  Receive Date: 20070717
  Receipt Date: 20070706
  Transmission Date: 20080115
  Serious: Yes (Death)
  Sender: FDA-Public Use
  Company Number: GB-PFIZER INC-2007055850

PATIENT
  Age: 6 Year
  Sex: Female

DRUGS (6)
  1. EPIRUBICIN HYDROCHLORIDE [Suspect]
     Indication: RHABDOMYOSARCOMA
  2. CARBOPLATIN [Suspect]
     Indication: RHABDOMYOSARCOMA
  3. VINCRISTINE [Suspect]
     Indication: RHABDOMYOSARCOMA
  4. ETOPOSIDE [Concomitant]
  5. IFOSFAMIDE [Concomitant]
  6. ACTINOMYCIN D [Concomitant]

REACTIONS (1)
  - INTERSTITIAL LUNG DISEASE [None]
